FAERS Safety Report 19472594 (Version 13)
Quarter: 2022Q3

REPORT INFORMATION
  Report Type: Report from Study
  Country: US (occurrence: US)
  Receive Date: 20210629
  Receipt Date: 20220729
  Transmission Date: 20221026
  Serious: Yes (Hospitalization, Other)
  Sender: FDA-Public Use
  Company Number: US-JNJFOC-20210556272

PATIENT
  Age: 76 Year
  Sex: Female
  Weight: 66.8 kg

DRUGS (8)
  1. UPTRAVI [Suspect]
     Active Substance: SELEXIPAG
     Indication: Pulmonary arterial hypertension
     Route: 048
  2. UPTRAVI [Suspect]
     Active Substance: SELEXIPAG
     Indication: Pulmonary hypertension
     Route: 048
  3. UPTRAVI [Suspect]
     Active Substance: SELEXIPAG
     Route: 048
  4. UPTRAVI [Suspect]
     Active Substance: SELEXIPAG
     Route: 048
  5. UPTRAVI [Suspect]
     Active Substance: SELEXIPAG
     Route: 048
     Dates: start: 2020
  6. ADEMPAS [Concomitant]
     Active Substance: RIOCIGUAT
     Dosage: DECREASED TO 0.5MG
  7. WARFARIN [Concomitant]
     Active Substance: WARFARIN
  8. METOPROLOL [Concomitant]
     Active Substance: METOPROLOL

REACTIONS (21)
  - Full blood count decreased [Not Recovered/Not Resolved]
  - Hip fracture [Recovering/Resolving]
  - Hypotension [Unknown]
  - Atrial fibrillation [Not Recovered/Not Resolved]
  - Chronic kidney disease [Not Recovered/Not Resolved]
  - Oxygen saturation decreased [Unknown]
  - Obstructive airways disorder [Unknown]
  - Thrombosis [Unknown]
  - Asthenia [Unknown]
  - Gait disturbance [Unknown]
  - Fall [Unknown]
  - Contusion [Unknown]
  - Haemoglobin decreased [Unknown]
  - Rhinorrhoea [Unknown]
  - Myalgia [Recovered/Resolved]
  - Respiratory tract infection [Unknown]
  - Fatigue [Unknown]
  - Nerve injury [Unknown]
  - Vascular pseudoaneurysm [Unknown]
  - Neuralgia [Unknown]
  - White blood cell count decreased [Unknown]

NARRATIVE: CASE EVENT DATE: 20210101
